FAERS Safety Report 16614508 (Version 2)
Quarter: 2021Q1

REPORT INFORMATION
  Report Type: Spontaneous
  Country: US (occurrence: US)
  Receive Date: 20190723
  Receipt Date: 20210201
  Transmission Date: 20210419
  Serious: No
  Sender: FDA-Public Use
  Company Number: US-PFIZER INC-2019311081

PATIENT
  Age: 73 Year
  Sex: Male
  Weight: 111.11 kg

DRUGS (1)
  1. SILDENAFIL CITRATE. [Suspect]
     Active Substance: SILDENAFIL CITRATE
     Indication: ERECTILE DYSFUNCTION
     Dosage: UNK (100 MG 1/2 TAKES A WEEK)

REACTIONS (1)
  - Therapeutic product effect incomplete [Not Recovered/Not Resolved]
